FAERS Safety Report 5643300-X (Version None)
Quarter: 2008Q1

REPORT INFORMATION
  Report Type: 
  Country: None (occurrence: None)
  Receive Date: 20080228
  Receipt Date: 20080215
  Transmission Date: 20080703
  Serious: Yes (Hospitalization, Disabling)
  Sender: FDA-Public Use
  Company Number: JP-ASTRAZENECA-2007SE06778

PATIENT
  Age: 28932 Day
  Sex: Male

DRUGS (16)
  1. BLOPRESS TABLETS 8 [Suspect]
     Indication: HYPERTENSION
     Route: 048
     Dates: end: 20071111
  2. BLOPRESS TABLETS 8 [Suspect]
     Route: 048
     Dates: start: 20071114, end: 20071128
  3. BLOPRESS TABLETS 8 [Suspect]
     Route: 048
     Dates: start: 20071129, end: 20071129
  4. BLOPRESS TABLETS 8 [Suspect]
     Route: 048
     Dates: start: 20071204
  5. TAKEPRON OD TABLETS 15 [Concomitant]
     Indication: GASTRIC ULCER
     Route: 048
     Dates: start: 20071115, end: 20071129
  6. TAKEPRON OD TABLETS 15 [Concomitant]
     Route: 048
  7. ADALAT [Concomitant]
     Indication: HYPERTENSION
     Route: 048
     Dates: start: 20071129, end: 20071129
  8. ASPIRIN [Concomitant]
     Indication: CEREBRAL INFARCTION
     Route: 048
     Dates: start: 20071111, end: 20071128
  9. ASPIRIN [Concomitant]
     Route: 048
     Dates: start: 20071129, end: 20071129
  10. ALLOPURINOL [Concomitant]
     Indication: GOUT
     Route: 048
     Dates: start: 20071111, end: 20071128
  11. ALLOPURINOL [Concomitant]
     Route: 048
     Dates: start: 20071129, end: 20071129
  12. SIMVASTATIN [Concomitant]
     Indication: HYPERLIPIDAEMIA
     Route: 048
     Dates: start: 20071111, end: 20071129
  13. SIMVASTATIN [Concomitant]
     Route: 048
  14. COVERSYL [Concomitant]
     Route: 048
     Dates: start: 20071116, end: 20071129
  15. WARFARIN SODIUM [Concomitant]
     Indication: CEREBRAL INFARCTION
     Route: 048
     Dates: start: 20071114, end: 20071129
  16. WARFARIN SODIUM [Concomitant]
     Route: 048

REACTIONS (2)
  - CEREBRAL INFARCTION [None]
  - OVERDOSE [None]
